FAERS Safety Report 7490779-7 (Version None)
Quarter: 2011Q2

REPORT INFORMATION
  Report Type: 
  Country: None (occurrence: None)
  Receive Date: 20110517
  Receipt Date: 20110517
  Transmission Date: 20111010
  Serious: Yes (Life-Threatening, Hospitalization)
  Sender: FDA-Public Use
  Company Number: None

PATIENT
  Age: 83 Year
  Sex: Male

DRUGS (1)
  1. WARFARIN SODIUM [Suspect]
     Dosage: 5 MG DAILY PO PRIOR TO ADMISSION
     Route: 048

REACTIONS (9)
  - HAEMATOCRIT DECREASED [None]
  - OCCULT BLOOD NEGATIVE [None]
  - HYPOTENSION [None]
  - RETROPERITONEAL HAEMORRHAGE [None]
  - HAEMATOMA [None]
  - MUSCULAR WEAKNESS [None]
  - RENAL FAILURE ACUTE [None]
  - HAEMOGLOBIN DECREASED [None]
  - INTERNATIONAL NORMALISED RATIO INCREASED [None]
